FAERS Safety Report 9362044 (Version 2)
Quarter: 2013Q4

REPORT INFORMATION
  Report Type: Spontaneous
  Country: US (occurrence: US)
  Receive Date: 20130621
  Receipt Date: 20131126
  Transmission Date: 20140711
  Serious: Yes (Hospitalization, Other)
  Sender: FDA-Public Use
  Company Number: US-B.I. PHARMACEUTICALS,INC./RIDGEFIELD-2013-BI-17417BP

PATIENT
  Age: 73 Year
  Sex: Male
  Weight: 89.61 kg

DRUGS (7)
  1. PRADAXA [Suspect]
     Indication: ATRIAL FIBRILLATION
     Dosage: 150 MG
     Route: 048
     Dates: start: 20101030, end: 20111207
  2. ADVAIR [Concomitant]
  3. SIMVASTATIN [Concomitant]
     Dosage: 20 MG
     Route: 048
  4. COREG [Concomitant]
     Dosage: 6.25 MG
     Route: 048
  5. LISINOPRIL [Concomitant]
     Dosage: 10 MG
     Route: 048
  6. FENOFIBRATE [Concomitant]
     Dosage: 160 MG
     Route: 048
  7. FLOMAX [Concomitant]
     Dosage: 0.4 MG
     Route: 048

REACTIONS (3)
  - Cerebral haemorrhage [Unknown]
  - Cerebrovascular accident [Unknown]
  - Fall [Unknown]
